FAERS Safety Report 4712856-3 (Version None)
Quarter: 2005Q3

REPORT INFORMATION
  Report Type: 
  Country: None (occurrence: None)
  Receive Date: 20050712
  Receipt Date: 20050712
  Transmission Date: 20060218
  Serious: Yes (Death, Hospitalization)
  Sender: FDA-Public Use
  Company Number: None

PATIENT
  Sex: Male

DRUGS (14)
  1. ROSIGLITAZONE [Suspect]
     Indication: DIABETES MELLITUS
     Dosage: 4 MG DAILY ORAL
     Route: 048
     Dates: start: 20050208, end: 20050302
  2. CARVEDILOL [Concomitant]
  3. COMBIVENT [Concomitant]
  4. ASPIRIN [Concomitant]
  5. METFORMIN HCL [Concomitant]
  6. FUROSEMIDE [Concomitant]
  7. ISOSORBIDE MONONITRATE [Concomitant]
  8. SIMVASTATIN [Concomitant]
  9. POTASSIUM CHLORIDE [Concomitant]
  10. DOCUSATE [Concomitant]
  11. TAMSULOSIN [Concomitant]
  12. BUPROPION HCL [Concomitant]
  13. CAPTOPRIL [Concomitant]
  14. ALBUTEROL [Concomitant]

REACTIONS (4)
  - CARDIAC ARREST [None]
  - CARDIAC FAILURE CONGESTIVE [None]
  - CARDIOGENIC SHOCK [None]
  - RENAL FAILURE [None]
